FAERS Safety Report 11750276 (Version 2)
Quarter: 2017Q2

REPORT INFORMATION
  Report Type: Spontaneous
  Country: CH (occurrence: CH)
  Receive Date: 20151118
  Receipt Date: 20170612
  Transmission Date: 20170829
  Serious: Yes (Life-Threatening, Hospitalization, Other)
  Sender: FDA-Public Use
  Company Number: CH-PFIZER INC-2015387315

PATIENT
  Age: 61 Year
  Sex: Male
  Weight: 85 kg

DRUGS (13)
  1. ACTEMRA [Suspect]
     Active Substance: TOCILIZUMAB
     Indication: RHEUMATOID ARTHRITIS
     Dosage: 162 MG, WEEKLY
     Route: 058
     Dates: start: 20150716, end: 20151008
  2. PANTOPRAZOL SANDOZ [Concomitant]
     Indication: GASTRITIS PROPHYLAXIS
     Dosage: 40 MG, 1X/DAY
     Route: 048
  3. METO ZEROK [Concomitant]
     Active Substance: METOPROLOL SUCCINATE
     Indication: CORONARY ARTERY DISEASE
     Dosage: 25 MG, 2X/DAY
     Route: 048
  4. ASS CARDIO SPIRIG [Concomitant]
     Indication: CORONARY ARTERY DISEASE
     Dosage: 100 MG, 1X/DAY
     Route: 048
  5. ATORVASTATIN SPIRIG HC [Concomitant]
     Indication: CORONARY ARTERY DISEASE
     Dosage: 40 MG, 1X/DAY
     Route: 048
  6. SPIRICORT [Concomitant]
     Active Substance: PREDNISOLONE
     Indication: RHEUMATOID ARTHRITIS
     Dosage: 5 MG, 1X/DAY
     Route: 048
     Dates: end: 20151025
  7. SALAZOPYRIN [Suspect]
     Active Substance: SULFASALAZINE
     Dosage: 500 MG, 2X/DAY
     Route: 048
     Dates: end: 20151029
  8. COVERSUM N [Concomitant]
     Active Substance: PERINDOPRIL
     Indication: CORONARY ARTERY DISEASE
     Dosage: 2.5 MG, 1X/DAY
     Route: 048
  9. PROXEN /00256201/ [Suspect]
     Active Substance: NAPROXEN
     Indication: RHEUMATOID ARTHRITIS
     Route: 048
  10. CALCIMAGON D3 [Concomitant]
     Active Substance: CALCIUM\CHOLECALCIFEROL
     Dosage: 2500 MG/800 U 1X/DAY
     Route: 048
  11. TRAMADOL SANDOZ [Concomitant]
     Active Substance: TRAMADOL
     Dosage: 5 GTT IN RESERVE
     Route: 048
  12. SALAZOPYRIN [Suspect]
     Active Substance: SULFASALAZINE
     Indication: RHEUMATOID ARTHRITIS
     Dosage: 500 G, 1X/DAY
     Route: 048
     Dates: start: 201510
  13. DAFALGAN [Concomitant]
     Active Substance: ACETAMINOPHEN
     Dosage: 1 G IN RESERVE
     Route: 048

REACTIONS (6)
  - Pyrexia [Recovered/Resolved]
  - Agranulocytosis [Recovering/Resolving]
  - Cellulitis [Recovering/Resolving]
  - Liver disorder [Unknown]
  - Pharyngitis bacterial [Recovering/Resolving]
  - Off label use [Recovering/Resolving]

NARRATIVE: CASE EVENT DATE: 201510
